APPROVED DRUG PRODUCT: CEFEPIME HYDROCHLORIDE
Active Ingredient: CEFEPIME HYDROCHLORIDE
Strength: EQ 1GM BASE/VIAL
Dosage Form/Route: INJECTABLE;INJECTION
Application: A091048 | Product #001 | TE Code: AP
Applicant: SAGENT PHARMACEUTICALS INC
Approved: Jan 4, 2017 | RLD: No | RS: No | Type: RX